FAERS Safety Report 8333476-8 (Version None)
Quarter: 2012Q2

REPORT INFORMATION
  Report Type: 
  Country: None (occurrence: None)
  Receive Date: 20120503
  Receipt Date: 20120425
  Transmission Date: 20120825
  Serious: Yes (Life-Threatening, Hospitalization, Other)
  Sender: FDA-Public Use
  Company Number: US-BAYER-2011-078032

PATIENT
  Age: 22 Year
  Sex: Female
  Weight: 55.782 kg

DRUGS (7)
  1. YAZ [Suspect]
     Indication: CONTRACEPTION
     Dosage: UNK
     Route: 048
     Dates: start: 20090101
  2. HYDROCODONE [Concomitant]
     Indication: PAIN
     Dosage: 1-2 TABLETS EVERY 4 HOURS AS NEEDED
     Route: 048
     Dates: start: 20090920
  3. VICODIN [Concomitant]
  4. NAPROSYN [Concomitant]
     Indication: PAIN
     Dosage: 500 MG, TWICE A DAY
  5. OXYCODONE HCL [Concomitant]
     Dosage: 5 MG Q 6H PRN (INTERPRETED AS AS NEEDED)
  6. NAPROSYN [Concomitant]
     Dosage: 500 MG, UNKTWICE A DAY AS NEEDED.
  7. ETHINYL ESTRADIOL [Concomitant]

REACTIONS (7)
  - CHOLECYSTITIS [None]
  - INTERNAL INJURY [None]
  - ANHEDONIA [None]
  - PAIN [None]
  - CHOLELITHIASIS [None]
  - BILE DUCT STONE [None]
  - ANXIETY [None]
